FAERS Safety Report 8140875-6 (Version None)
Quarter: 2012Q1

REPORT INFORMATION
  Report Type: 
  Country: None (occurrence: None)
  Receive Date: 20120216
  Receipt Date: 20120207
  Transmission Date: 20120608
  Serious: Yes (Other)
  Sender: FDA-Public Use
  Company Number: FR-JNJFOC-20120204728

PATIENT
  Age: 81 Year
  Sex: Female

DRUGS (3)
  1. XARELTO [Suspect]
     Indication: KNEE ARTHROPLASTY
     Route: 048
     Dates: start: 20120120, end: 20120130
  2. INNOHEP [Concomitant]
  3. INNOHEP [Concomitant]
     Indication: SURGERY
     Dates: start: 20120119, end: 20120119

REACTIONS (1)
  - THROMBOSIS [None]
